FAERS Safety Report 12863043 (Version 3)
Quarter: 2018Q2

REPORT INFORMATION
  Report Type: Spontaneous
  Country: IN (occurrence: IN)
  Receive Date: 20161019
  Receipt Date: 20180427
  Transmission Date: 20180711
  Serious: Yes (Life-Threatening, Hospitalization, Other)
  Sender: FDA-Public Use
  Company Number: PHHY2016IN143186

PATIENT
  Age: 75 Year
  Sex: Male

DRUGS (2)
  1. ZOLEDRONATE [Suspect]
     Active Substance: ZOLEDRONIC ACID
     Indication: OSTEOPOROSIS
     Dosage: 4 MG, IN 100 ML NORMAL SALINE OVER 1 HOUR
     Route: 042
  2. SODIUM CHLORIDE SOLUTION 0.9% [Concomitant]
     Active Substance: SODIUM CHLORIDE
     Indication: PRODUCT USED FOR UNKNOWN INDICATION
     Dosage: 4MG AS INTRA VENOUS INFUSION IN 100 ML NORMAL SALINE OVER 1 HR.
     Route: 042

REACTIONS (6)
  - Hypocalcaemia [Recovering/Resolving]
  - Sinus tachycardia [Unknown]
  - Delirium [Recovered/Resolved]
  - Hypophosphataemia [Recovered/Resolved]
  - Vomiting [Unknown]
  - Hyponatraemia [Recovering/Resolving]
